FAERS Safety Report 6303906-1 (Version None)
Quarter: 2009Q3

REPORT INFORMATION
  Report Type: 
  Country: None (occurrence: None)
  Receive Date: 20090805
  Receipt Date: 20041223
  Transmission Date: 20100115
  Serious: No
  Sender: FDA-Public Use
  Company Number: CEL-2004-02214-SLO

PATIENT
  Age: 54 Year
  Sex: Female

DRUGS (3)
  1. OLSALAZINE SODIUM [Suspect]
     Indication: COLITIS ULCERATIVE
     Dosage: 1000 MG PO
     Route: 048
     Dates: start: 20041118, end: 20041124
  2. TOLTERODINE TARTRATE [Concomitant]
  3. LANSOPRAZOLE [Concomitant]

REACTIONS (1)
  - PERIPHERAL SENSORY NEUROPATHY [None]
